FAERS Safety Report 4760076-9 (Version None)
Quarter: 2005Q3

REPORT INFORMATION
  Report Type: 
  Country: None (occurrence: None)
  Receive Date: 20050831
  Receipt Date: 20050831
  Transmission Date: 20060218
  Serious: Yes (Life-Threatening, Hospitalization)
  Sender: FDA-Public Use
  Company Number: None

PATIENT
  Sex: Female
  Weight: 99.7913 kg

DRUGS (4)
  1. NARDIL [Suspect]
     Indication: AGORAPHOBIA
     Dosage: 60 MG   1 TIME DAILY   PO
     Route: 048
     Dates: start: 19870101, end: 20050601
  2. NARDIL [Suspect]
     Indication: ANXIETY
     Dosage: 60 MG   1 TIME DAILY   PO
     Route: 048
     Dates: start: 19870101, end: 20050601
  3. NARDIL [Suspect]
     Indication: DEPRESSION
     Dosage: 60 MG   1 TIME DAILY   PO
     Route: 048
     Dates: start: 19870101, end: 20050601
  4. ELECTROCONVULSANT THERAPY [Concomitant]

REACTIONS (3)
  - DRUG INEFFECTIVE [None]
  - SUICIDE ATTEMPT [None]
  - WEIGHT INCREASED [None]
